FAERS Safety Report 23961165 (Version 1)
Quarter: 2024Q2

REPORT INFORMATION
  Report Type: Spontaneous
  Country: US (occurrence: US)
  Receive Date: 20240611
  Receipt Date: 20240611
  Transmission Date: 20240716
  Serious: No
  Sender: FDA-Public Use
  Company Number: US-SA-SAC20240605001427

PATIENT
  Age: 47 Year
  Sex: Female

DRUGS (10)
  1. KEVZARA [Suspect]
     Active Substance: SARILUMAB
     Indication: Rheumatoid arthritis
     Dosage: 200 MG, QOW
     Route: 058
     Dates: start: 20240430
  2. OMEGA-3 FATTY ACIDS [Concomitant]
     Active Substance: OMEGA-3 FATTY ACIDS
  3. SULFASALAZINE [Concomitant]
     Active Substance: SULFASALAZINE
  4. FLONASE ALLERGY RELIEF [Concomitant]
     Active Substance: FLUTICASONE PROPIONATE
  5. FOLIC ACID [Concomitant]
     Active Substance: FOLIC ACID
  6. MAGNESIUM GLUCONATE [Concomitant]
     Active Substance: MAGNESIUM GLUCONATE
  7. MIRENA [Concomitant]
     Active Substance: LEVONORGESTREL
  8. NAPROXEN [Concomitant]
     Active Substance: NAPROXEN
     Indication: Rheumatoid arthritis
  9. VITAMIN D3 [Concomitant]
     Active Substance: CHOLECALCIFEROL
  10. METHOTREXATE [Concomitant]
     Active Substance: METHOTREXATE

REACTIONS (3)
  - Loss of personal independence in daily activities [Not Recovered/Not Resolved]
  - Arthralgia [Not Recovered/Not Resolved]
  - Drug ineffective [Not Recovered/Not Resolved]

NARRATIVE: CASE EVENT DATE: 20240501
